FAERS Safety Report 9465319 (Version 1)
Quarter: 2013Q3

REPORT INFORMATION
  Report Type: Spontaneous
  Country: US (occurrence: US)
  Receive Date: 20130820
  Receipt Date: 20130820
  Transmission Date: 20140515
  Serious: Yes (Other)
  Sender: FDA-Public Use
  Company Number: US-JNJFOC-20130803468

PATIENT
  Age: 34 Year
  Sex: Male
  Weight: 74.84 kg

DRUGS (1)
  1. BENADRYL ALLERGY ULTRATAB [Suspect]
     Indication: EYE PRURITUS
     Dosage: 2 PILLS IN THE AFTERNOON, 1 PILL IN THE EVENING
     Route: 048
     Dates: start: 20130804, end: 20130804

REACTIONS (1)
  - Drug screen positive [Recovered/Resolved]
